FAERS Safety Report 8218639-4 (Version None)
Quarter: 2012Q1

REPORT INFORMATION
  Report Type: 
  Country: None (occurrence: None)
  Receive Date: 20120319
  Receipt Date: 20120309
  Transmission Date: 20120608
  Serious: Yes (Other)
  Sender: FDA-Public Use
  Company Number: PHHY2012JP017738

PATIENT
  Age: 70 Year
  Sex: Female

DRUGS (3)
  1. BLOOD TRANSFUSION, AUXILIARY PRODUCTS [Concomitant]
     Dosage: 4 UNITS PER MONTH
  2. EXJADE [Suspect]
     Indication: IRON OVERLOAD
     Dosage: 20 MG/KG, UNK
     Dates: start: 20100101
  3. BLOOD TRANSFUSION, AUXILIARY PRODUCTS [Concomitant]
     Dosage: 2 U, UNK
     Dates: start: 20100301

REACTIONS (1)
  - PNEUMONIA [None]
